FAERS Safety Report 22136348 (Version 1)
Quarter: 2023Q1

REPORT INFORMATION
  Report Type: Report from Study
  Country: US (occurrence: US)
  Receive Date: 20230324
  Receipt Date: 20230324
  Transmission Date: 20230418
  Serious: Yes (Other)
  Sender: FDA-Public Use
  Company Number: US-REGENERON PHARMACEUTICALS, INC.-2023-044116

PATIENT
  Sex: Male

DRUGS (2)
  1. PRALUENT [Suspect]
     Active Substance: ALIROCUMAB
     Indication: Product used for unknown indication
     Dosage: UNK UNK, Q2W
     Route: 065
     Dates: start: 202001
  2. PRALUENT [Suspect]
     Active Substance: ALIROCUMAB
     Dosage: 75 MG, Q3W
     Route: 058
     Dates: end: 202102

REACTIONS (12)
  - Eye haemorrhage [Unknown]
  - Syncope [Unknown]
  - Nephritis [Unknown]
  - Abdominal pain upper [Unknown]
  - Cold sweat [Unknown]
  - Dizziness [Unknown]
  - Epistaxis [Unknown]
  - Vasculitis [Unknown]
  - Dyspnoea [Unknown]
  - Skin burning sensation [Unknown]
  - Gastritis [Unknown]
  - Spleen disorder [Unknown]
